FAERS Safety Report 15656830 (Version 1)
Quarter: 2018Q4

REPORT INFORMATION
  Report Type: Spontaneous
  Country: US (occurrence: US)
  Receive Date: 20181126
  Receipt Date: 20181126
  Transmission Date: 20190205
  Serious: Yes (Other)
  Sender: FDA-Public Use
  Company Number: US-JNJFOC-20181122620

PATIENT
  Sex: Male
  Weight: 67.13 kg

DRUGS (6)
  1. XARELTO [Suspect]
     Active Substance: RIVAROXABAN
     Indication: ARRHYTHMIA
     Dosage: 33081332270003
     Route: 048
     Dates: start: 201701, end: 20181114
  2. DIAZEPAM. [Concomitant]
     Active Substance: DIAZEPAM
     Indication: DYSKINESIA
     Route: 048
  3. HYDROCODONE [Concomitant]
     Active Substance: HYDROCODONE
     Indication: PAIN
     Dosage: ONE HALF PILL/
     Route: 048
  4. OMEPRAZOLE. [Concomitant]
     Active Substance: OMEPRAZOLE
     Indication: GASTRIC DISORDER
     Route: 048
  5. XARELTO [Suspect]
     Active Substance: RIVAROXABAN
     Indication: ARRHYTHMIA
     Route: 048
     Dates: start: 2013
  6. DIAZEPAM. [Concomitant]
     Active Substance: DIAZEPAM
     Indication: GASTRIC DISORDER
     Route: 048

REACTIONS (4)
  - Epistaxis [Recovered/Resolved]
  - Pneumonia [Unknown]
  - Pulmonary haemorrhage [Not Recovered/Not Resolved]
  - Gingival bleeding [Recovered/Resolved]

NARRATIVE: CASE EVENT DATE: 2017
